FAERS Safety Report 16290569 (Version 1)
Quarter: 2019Q2

REPORT INFORMATION
  Report Type: Spontaneous
  Country: US (occurrence: US)
  Receive Date: 20190403
  Receipt Date: 20190403
  Transmission Date: 20190711
  Serious: Yes (Other)
  Sender: FDA-Public Use
  Company Number: None

PATIENT
  Age: 39 Year
  Sex: Female

DRUGS (1)
  1. TYKERB [Suspect]
     Active Substance: LAPATINIB DITOSYLATE
     Dates: start: 20181218

REACTIONS (5)
  - Diarrhoea [None]
  - Nausea [None]
  - Vomiting [None]
  - Fatigue [None]
  - Constipation [None]

NARRATIVE: CASE EVENT DATE: 20190313
